FAERS Safety Report 17227633 (Version 1)
Quarter: 2020Q1

REPORT INFORMATION
  Report Type: Spontaneous
  Country: FR (occurrence: FR)
  Receive Date: 20200103
  Receipt Date: 20200103
  Transmission Date: 20200409
  Serious: Yes (Life-Threatening, Other)
  Sender: FDA-Public Use
  Company Number: FR-PIRAMAL ENTERPRISES LIMITED-2019-PEL-000509

PATIENT

DRUGS (4)
  1. PROPOFOL. [Concomitant]
     Active Substance: PROPOFOL
     Indication: GENERAL ANAESTHESIA
     Dosage: 150 MILLIGRAM
     Route: 065
  2. ISOFLURANE 100% INHALATION VAPOUR LIQUID [Suspect]
     Active Substance: ISOFLURANE
     Indication: MAINTENANCE OF ANAESTHESIA
     Dosage: UNK
  3. ALFENTANIL. [Concomitant]
     Active Substance: ALFENTANIL
     Dosage: 0.5 MILLIGRAM
     Route: 042
  4. ALFENTANIL. [Concomitant]
     Active Substance: ALFENTANIL
     Indication: GENERAL ANAESTHESIA
     Dosage: 1 MILLIGRAM
     Route: 065

REACTIONS (11)
  - Acute kidney injury [Recovering/Resolving]
  - Disseminated intravascular coagulation [Recovering/Resolving]
  - Cholestasis [Recovering/Resolving]
  - Hepatic ischaemia [Recovering/Resolving]
  - Acidosis [Recovering/Resolving]
  - Attention deficit/hyperactivity disorder [Recovering/Resolving]
  - Cardiac arrest [Recovering/Resolving]
  - Confusional state [Recovering/Resolving]
  - Hyperthermia malignant [Recovering/Resolving]
  - Hepatocellular injury [Recovering/Resolving]
  - Circulatory collapse [Recovering/Resolving]
